FAERS Safety Report 20966128 (Version 2)
Quarter: 2022Q3

REPORT INFORMATION
  Report Type: Spontaneous
  Country: US (occurrence: US)
  Receive Date: 20220616
  Receipt Date: 20220728
  Transmission Date: 20221027
  Serious: No
  Sender: FDA-Public Use
  Company Number: US-PFIZER INC-202200787367

PATIENT
  Age: 9 Year
  Sex: Male

DRUGS (1)
  1. GENOTROPIN [Suspect]
     Active Substance: SOMATROPIN
     Indication: Hormone replacement therapy
     Dosage: UNK, DAILY (1.2 EVERY DAY)
     Dates: start: 202205

REACTIONS (4)
  - Product dose omission issue [Unknown]
  - Product preparation error [Unknown]
  - Wrong technique in device usage process [Unknown]
  - Device leakage [Unknown]
